FAERS Safety Report 9185687 (Version 1)
Quarter: 2012Q4

REPORT INFORMATION
  Report Type: 
  Country: US (occurrence: US)
  Receive Date: 20121031
  Receipt Date: 20121031
  Transmission Date: 20130627
  Serious: No
  Sender: FDA-Public Use
  Company Number: US-009507513-1210USA010554

PATIENT
  Sex: Male

DRUGS (6)
  1. VICTRELIS [Suspect]
     Indication: HEPATITIS C
     Dosage: 200 mg, q8h
     Route: 048
     Dates: start: 2009
  2. VICTRELIS [Suspect]
     Dosage: 200 mg, q8h
     Route: 048
     Dates: start: 20121004
  3. PEGASYS [Suspect]
     Indication: HEPATITIS C
     Dosage: UNK
     Dates: start: 201208
  4. RIBASPHERE [Suspect]
     Indication: HEPATITIS C
     Dosage: UNK
     Dates: start: 2009
  5. RIBASPHERE [Suspect]
     Dosage: UNK
     Dates: start: 20120831
  6. PEGINTRON [Suspect]
     Indication: HEPATITIS C
     Dosage: UNK
     Dates: start: 2009

REACTIONS (3)
  - Treatment failure [Not Recovered/Not Resolved]
  - Painful defaecation [Not Recovered/Not Resolved]
  - Diarrhoea [Not Recovered/Not Resolved]
